FAERS Safety Report 8093279-9 (Version None)
Quarter: 2012Q1

REPORT INFORMATION
  Report Type: 
  Country: None (occurrence: None)
  Receive Date: 20120128
  Receipt Date: 20110928
  Transmission Date: 20120608
  Serious: No
  Sender: FDA-Public Use
  Company Number: US-ABBOTT-11P-163-0734553-00

PATIENT
  Sex: Female
  Weight: 72.64 kg

DRUGS (11)
  1. CRESTOR [Concomitant]
     Indication: BLOOD CHOLESTEROL INCREASED
     Route: 048
  2. LORTAB [Concomitant]
     Indication: PAIN
     Dosage: 10/500MG, PRN
     Route: 048
  3. HUMIRA [Suspect]
     Indication: RHEUMATOID ARTHRITIS
     Dates: start: 20110615, end: 20110815
  4. MOBIC [Concomitant]
     Indication: PRODUCT USED FOR UNKNOWN INDICATION
     Dosage: DAILY
     Route: 048
  5. PHENAZOPYRIDINE HCL TAB [Concomitant]
     Indication: PRODUCT USED FOR UNKNOWN INDICATION
  6. PLAQUENIL [Concomitant]
     Indication: RHEUMATOID ARTHRITIS
     Dosage: DAILY
     Route: 048
  7. UNKNOWN CHOLESTEROL MEDICATION [Concomitant]
     Indication: BLOOD CHOLESTEROL ABNORMAL
  8. XANAX [Concomitant]
     Indication: NERVOUSNESS
  9. AMBIEN [Concomitant]
     Indication: PRODUCT USED FOR UNKNOWN INDICATION
     Route: 048
  10. UNKNOWN TRIGLYCERIDE MEDICATION [Concomitant]
     Indication: BLOOD TRIGLYCERIDES ABNORMAL
  11. FENOFIBRATE [Concomitant]
     Indication: PRODUCT USED FOR UNKNOWN INDICATION
     Dosage: DAILY
     Route: 048

REACTIONS (9)
  - PRESYNCOPE [None]
  - BACK PAIN [None]
  - DYSURIA [None]
  - HEART RATE INCREASED [None]
  - FEELING HOT [None]
  - DIZZINESS [None]
  - FATIGUE [None]
  - ASTHENIA [None]
  - FUNGAL INFECTION [None]
